FAERS Safety Report 5688112-6 (Version None)
Quarter: 2008Q1

REPORT INFORMATION
  Report Type: 
  Country: None (occurrence: None)
  Receive Date: 20080327
  Receipt Date: 20080319
  Transmission Date: 20080703
  Serious: Yes (Other)
  Sender: FDA-Public Use
  Company Number: DSU-2008-00410

PATIENT
  Age: 39 Year
  Sex: Female

DRUGS (1)
  1. FLOXIN OTIC [Suspect]
     Indication: DRUG USE FOR UNKNOWN INDICATION
     Dates: start: 20071001, end: 20071001

REACTIONS (2)
  - CORNEAL ABRASION [None]
  - DRUG DISPENSING ERROR [None]
